FAERS Safety Report 6217019-0 (Version None)
Quarter: 2009Q2

REPORT INFORMATION
  Report Type: 
  Country: None (occurrence: None)
  Receive Date: 20090604
  Receipt Date: 20090529
  Transmission Date: 20091009
  Serious: Yes (Death, Life-Threatening, Hospitalization)
  Sender: FDA-Public Use
  Company Number: 2009US001961

PATIENT
  Age: 64 Week
  Sex: Female
  Weight: 10 kg

DRUGS (1)
  1. AMBISOME [Suspect]
     Indication: SYSTEMIC MYCOSIS
     Dosage: 5 MG/KG,  IV NOS
     Route: 042

REACTIONS (14)
  - ADENOVIRUS INFECTION [None]
  - ARRHYTHMIA [None]
  - CARDIOVASCULAR INSUFFICIENCY [None]
  - HAEMOGLOBIN DECREASED [None]
  - HYPERKALAEMIA [None]
  - HYPOTENSION [None]
  - OXYGEN SATURATION DECREASED [None]
  - PLATELET COUNT DECREASED [None]
  - PNEUMONIA RESPIRATORY SYNCYTIAL VIRAL [None]
  - PUPIL FIXED [None]
  - RASH [None]
  - RESPIRATORY FAILURE [None]
  - STAPHYLOCOCCAL INFECTION [None]
  - VENTRICULAR FIBRILLATION [None]
